FAERS Safety Report 5069987-0 (Version None)
Quarter: 2006Q3

REPORT INFORMATION
  Report Type: 
  Country: None (occurrence: None)
  Receive Date: 20060731
  Receipt Date: 20060720
  Transmission Date: 20061208
  Serious: Yes (Disabling)
  Sender: FDA-Public Use
  Company Number: 2006-145875-NL

PATIENT
  Age: 45 Year
  Sex: Female

DRUGS (1)
  1. MIRTAZAPINE [Suspect]
     Indication: DEPRESSION
     Dosage: 30 MG ORAL
     Route: 048
     Dates: start: 20060614, end: 20060615

REACTIONS (2)
  - EYE SWELLING [None]
  - SWELLING FACE [None]
